FAERS Safety Report 12122496 (Version 3)
Quarter: 2016Q1

REPORT INFORMATION
  Report Type: Spontaneous
  Country: US (occurrence: US)
  Receive Date: 20160226
  Receipt Date: 20160324
  Transmission Date: 20160526
  Serious: Yes (Other)
  Sender: FDA-Public Use
  Company Number: US-TAKEDA-2016TUS002982

PATIENT
  Age: 71 Year
  Sex: Female
  Weight: 68.48 kg

DRUGS (2)
  1. TRINTELLIX [Suspect]
     Active Substance: VORTIOXETINE HYDROBROMIDE
     Indication: ANXIETY
     Dosage: 5 MG, QD
     Route: 048
     Dates: start: 20160204
  2. PARAGARD T 380A [Concomitant]
     Active Substance: COPPER
     Indication: CONTRACEPTION

REACTIONS (3)
  - Deep vein thrombosis [Recovering/Resolving]
  - Palpitations [Unknown]
  - Off label use [Not Recovered/Not Resolved]

NARRATIVE: CASE EVENT DATE: 20160224
